FAERS Safety Report 6962103-7 (Version None)
Quarter: 2010Q3

REPORT INFORMATION
  Report Type: 
  Country: None (occurrence: None)
  Receive Date: 20100901
  Receipt Date: 20100901
  Transmission Date: 20110219
  Serious: No
  Sender: FDA-Public Use
  Company Number: None

PATIENT
  Age: 16 Year
  Sex: Female
  Weight: 60.782 kg

DRUGS (2)
  1. ALLERX DF 30 CORNERSTONE [Suspect]
     Indication: MULTIPLE ALLERGIES
     Dosage: TWICE DAILY
     Dates: start: 20100805, end: 20100822
  2. ALLERX DF 30 CORNERSTONE [Suspect]
     Indication: URTICARIA
     Dosage: TWICE DAILY
     Dates: start: 20100805, end: 20100822

REACTIONS (5)
  - ABNORMAL BEHAVIOUR [None]
  - MEMORY IMPAIRMENT [None]
  - MOOD SWINGS [None]
  - OPPOSITIONAL DEFIANT DISORDER [None]
  - TREMOR [None]
